FAERS Safety Report 9625010 (Version 1)
Quarter: 2013Q4

REPORT INFORMATION
  Report Type: Spontaneous
  Country: US (occurrence: US)
  Receive Date: 20131016
  Receipt Date: 20131016
  Transmission Date: 20140711
  Serious: No
  Sender: FDA-Public Use
  Company Number: US-009507513-1310USA006854

PATIENT
  Age: 21 Year
  Sex: Female
  Weight: 61.22 kg

DRUGS (1)
  1. IMPLANON [Suspect]
     Indication: CONTRACEPTION
     Dosage: 68MG, ONE ROD EVERY THREE YEARS
     Route: 059
     Dates: start: 20100525, end: 201306

REACTIONS (2)
  - Acne [Not Recovered/Not Resolved]
  - Incorrect drug administration duration [Unknown]
